FAERS Safety Report 17139120 (Version 1)
Quarter: 2019Q4

REPORT INFORMATION
  Report Type: Spontaneous
  Country: GB (occurrence: GB)
  Receive Date: 20191211
  Receipt Date: 20191211
  Transmission Date: 20200122
  Serious: Yes (Hospitalization, Other)
  Sender: FDA-Public Use
  Company Number: GB-TEVA-2019-GB-1148399

PATIENT
  Age: 88 Year
  Sex: Male
  Weight: 104.5 kg

DRUGS (9)
  1. ISOSORBIDE MONONITRATE. [Concomitant]
     Active Substance: ISOSORBIDE MONONITRATE
  2. BISOPROLOL [Concomitant]
     Active Substance: BISOPROLOL
  3. DOXAZOSIN [Concomitant]
     Active Substance: DOXAZOSIN MESYLATE
  4. WARFARIN [Suspect]
     Active Substance: WARFARIN
     Dosage: AS PER INTERNATIONAL NORMALISED RATIO.
     Route: 048
  5. BEZAFIBRATE [Concomitant]
     Active Substance: BEZAFIBRATE
  6. NICORANDIL [Suspect]
     Active Substance: NICORANDIL
     Dosage: 20 MILLIGRAM PER DAY
     Route: 048
  7. NAPROXEN. [Suspect]
     Active Substance: NAPROXEN
     Indication: GOUT
     Dosage: 250 MILLIGRAM DAILY; 250  MILLIGRAM, THREE TIMES A DAY.
     Route: 048
  8. ALLOPURINOL. [Concomitant]
     Active Substance: ALLOPURINOL
  9. LANSOPRAZOLE. [Concomitant]
     Active Substance: LANSOPRAZOLE

REACTIONS (4)
  - Acute myocardial infarction [Recovering/Resolving]
  - Gastrointestinal ulcer [Recovering/Resolving]
  - Upper gastrointestinal haemorrhage [Recovering/Resolving]
  - Anaemia [Recovering/Resolving]

NARRATIVE: CASE EVENT DATE: 20191030
